FAERS Safety Report 20140148 (Version 1)
Quarter: 2021Q4

REPORT INFORMATION
  Report Type: Spontaneous
  Country: US (occurrence: US)
  Receive Date: 20211202
  Receipt Date: 20211202
  Transmission Date: 20220303
  Serious: Yes (Other)
  Sender: FDA-Public Use
  Company Number: US-SA-SAC20211126001023

PATIENT
  Sex: Female

DRUGS (3)
  1. AUBAGIO [Suspect]
     Active Substance: TERIFLUNOMIDE
     Indication: Multiple sclerosis
     Dosage: UNK
  2. PLEGRIDY [Suspect]
     Active Substance: PEGINTERFERON BETA-1A
  3. AMPYRA [Suspect]
     Active Substance: DALFAMPRIDINE

REACTIONS (4)
  - Vitreous detachment [Unknown]
  - Abdominal pain [Unknown]
  - Hepatic enzyme increased [Unknown]
  - Nausea [Unknown]
